FAERS Safety Report 15320058 (Version 2)
Quarter: 2018Q3

REPORT INFORMATION
  Report Type: Spontaneous
  Country: US (occurrence: US)
  Receive Date: 20180827
  Receipt Date: 20180830
  Transmission Date: 20181010
  Serious: No
  Sender: FDA-Public Use
  Company Number: US-PFIZER INC-2018340239

PATIENT
  Sex: Female

DRUGS (2)
  1. REVATIO [Suspect]
     Active Substance: SILDENAFIL CITRATE
     Indication: PULMONARY ARTERIAL HYPERTENSION
     Dosage: 60 MG, EVERY 6 HOURS
  2. REVATIO [Suspect]
     Active Substance: SILDENAFIL CITRATE
     Indication: HYPOXIA
     Dosage: 80 MG, EVERY 6 HOURS

REACTIONS (2)
  - Product use issue [Unknown]
  - Drug ineffective [Unknown]
